FAERS Safety Report 7989517-0 (Version None)
Quarter: 2011Q4

REPORT INFORMATION
  Report Type: 
  Country: None (occurrence: None)
  Receive Date: 20111219
  Receipt Date: 20101123
  Transmission Date: 20120403
  Serious: No
  Sender: FDA-Public Use
  Company Number: US-ASTRAZENECA-2010SE55726

PATIENT
  Age: 22842 Day
  Sex: Female
  Weight: 77.1 kg

DRUGS (1)
  1. CRESTOR [Suspect]
     Indication: HYPERCHOLESTEROLAEMIA
     Dosage: DAILY
     Route: 048
     Dates: start: 20101016, end: 20101101

REACTIONS (3)
  - MUSCULAR WEAKNESS [None]
  - ARTHRITIS [None]
  - MUSCLE SPASMS [None]
